FAERS Safety Report 11137012 (Version 2)
Quarter: 2015Q4

REPORT INFORMATION
  Report Type: Spontaneous
  Country: US (occurrence: US)
  Receive Date: 20150526
  Receipt Date: 20151203
  Transmission Date: 20160304
  Serious: Yes (Other)
  Sender: FDA-Public Use
  Company Number: US-MALLINCKRODT-T201501515

PATIENT
  Age: 2 Year
  Sex: Female
  Weight: 16 kg

DRUGS (4)
  1. H.P. ACTHAR [Suspect]
     Active Substance: CORTICOTROPIN
     Dosage: 4 ML TWICE DAILY
     Route: 030
     Dates: start: 201511
  2. ASPIRIN. [Concomitant]
     Active Substance: ASPIRIN
     Dosage: UNK, QD
  3. H.P. ACTHAR [Suspect]
     Active Substance: CORTICOTROPIN
     Indication: INFANTILE SPASMS
     Dosage: 4 ML TWICE DAILY
     Route: 030
     Dates: start: 2014, end: 201502
  4. H.P. ACTHAR [Suspect]
     Active Substance: CORTICOTROPIN
     Dosage: 4 ML TWICE DAILY
     Route: 030
     Dates: start: 201502

REACTIONS (9)
  - Intentional product misuse [Not Recovered/Not Resolved]
  - Crying [Not Recovered/Not Resolved]
  - Seizure [Not Recovered/Not Resolved]
  - Blood pressure increased [Not Recovered/Not Resolved]
  - Screaming [Not Recovered/Not Resolved]
  - Insomnia [Not Recovered/Not Resolved]
  - Ear infection [Not Recovered/Not Resolved]
  - Drug ineffective [Not Recovered/Not Resolved]
  - Irritability [Not Recovered/Not Resolved]

NARRATIVE: CASE EVENT DATE: 201511
